FAERS Safety Report 11059276 (Version 1)
Quarter: 2015Q2

REPORT INFORMATION
  Report Type: Spontaneous
  Country: US (occurrence: None)
  Receive Date: 20150422
  Receipt Date: 20150422
  Transmission Date: 20150821
  Serious: No
  Sender: FDA-Public Use
  Company Number: None

PATIENT
  Age: 76 Year
  Sex: Female
  Weight: 50.8 kg

DRUGS (1)
  1. PANTOPRAZOLE SODIUM. [Suspect]
     Active Substance: PANTOPRAZOLE SODIUM
     Indication: GASTROOESOPHAGEAL REFLUX DISEASE
     Dosage: 1 DAILY ORALLY
     Route: 048
     Dates: start: 20150305

REACTIONS (2)
  - Glossodynia [None]
  - Oral discomfort [None]

NARRATIVE: CASE EVENT DATE: 20150316
